FAERS Safety Report 7130652-7 (Version None)
Quarter: 2010Q4

REPORT INFORMATION
  Report Type: 
  Country: None (occurrence: None)
  Receive Date: 20101101
  Receipt Date: 20101006
  Transmission Date: 20110411
  Serious: No
  Sender: FDA-Public Use
  Company Number: 2010-13341

PATIENT
  Age: 87 Year
  Sex: Male

DRUGS (2)
  1. RAPAFLO [Suspect]
     Indication: PROSTATIC SPECIFIC ANTIGEN
     Dosage: 8 MG, DAILY, ORAL
     Route: 048
     Dates: start: 20100801
  2. LUPRON [Concomitant]

REACTIONS (2)
  - HYPERHIDROSIS [None]
  - LOSS OF CONSCIOUSNESS [None]
